FAERS Safety Report 15653877 (Version 1)
Quarter: 2018Q4

REPORT INFORMATION
  Report Type: Spontaneous
  Country: US (occurrence: US)
  Receive Date: 20181124
  Receipt Date: 20181124
  Transmission Date: 20190205
  Serious: Yes (Disabling, Other)
  Sender: FDA-Public Use
  Company Number: None

PATIENT
  Age: 36 Year
  Sex: Female
  Weight: 81 kg

DRUGS (1)
  1. ANASTROZOLE (GENERIC?) [Suspect]
     Active Substance: ANASTROZOLE
     Indication: OVARIAN CANCER
     Dosage: ?          QUANTITY:1 TABLET(S);?
     Route: 048
     Dates: start: 20180818, end: 20180920

REACTIONS (21)
  - Bone pain [None]
  - Oropharyngeal pain [None]
  - Weight increased [None]
  - Peripheral swelling [None]
  - Speech disorder [None]
  - Arthralgia [None]
  - Dry mouth [None]
  - Constipation [None]
  - Thirst [None]
  - Grip strength decreased [None]
  - Insomnia [None]
  - Cough [None]
  - Decreased appetite [None]
  - Alopecia [None]
  - Depression [None]
  - Hot flush [None]
  - Hypoaesthesia [None]
  - Pain [None]
  - Hyperhidrosis [None]
  - Headache [None]
  - Breast tenderness [None]

NARRATIVE: CASE EVENT DATE: 20180920
